FAERS Safety Report 4946054-5 (Version None)
Quarter: 2006Q1

REPORT INFORMATION
  Report Type: 
  Country: None (occurrence: None)
  Receive Date: 20060316
  Receipt Date: 20050930
  Transmission Date: 20060701
  Serious: Yes (Hospitalization, Disabling)
  Sender: FDA-Public Use
  Company Number: US-MERCK-0510USA00871

PATIENT
  Age: 47 Year
  Sex: Male
  Weight: 147 kg

DRUGS (2)
  1. VIOXX [Suspect]
     Indication: CHEST PAIN
     Route: 048
     Dates: start: 20030701, end: 20040801
  2. VIOXX [Suspect]
     Indication: DISCOMFORT
     Route: 048
     Dates: start: 20030701, end: 20040801

REACTIONS (2)
  - CARDIAC DISORDER [None]
  - MYOCARDIAL INFARCTION [None]
